FAERS Safety Report 7257283-2 (Version None)
Quarter: 2011Q1

REPORT INFORMATION
  Report Type: 
  Country: None (occurrence: None)
  Receive Date: 20110129
  Receipt Date: 20100706
  Transmission Date: 20110831
  Serious: No
  Sender: FDA-Public Use
  Company Number: US-ABBOTT-10P-163-0655558-00

PATIENT
  Age: 68 Year
  Sex: Female

DRUGS (8)
  1. PLAQUENIL [Concomitant]
     Indication: ARTHRITIS
     Route: 048
  2. HUMIRA [Suspect]
     Indication: RHEUMATOID ARTHRITIS
     Dates: start: 20070101
  3. FLEXERIL [Concomitant]
     Indication: PAIN
     Dosage: AS REQUIRED
     Route: 048
  4. TRAVATIN [Concomitant]
     Indication: GLAUCOMA
  5. CLARINEX [Concomitant]
     Indication: HYPERSENSITIVITY
     Route: 048
  6. METHOTREXATE [Concomitant]
     Indication: ARTHRITIS
     Route: 048
  7. CALCIUM D [Concomitant]
     Indication: PRODUCT USED FOR UNKNOWN INDICATION
     Dosage: OCCASIONALLY
  8. RESTASIS [Concomitant]
     Indication: DRY EYE

REACTIONS (2)
  - FEELING ABNORMAL [None]
  - SINUSITIS [None]
